FAERS Safety Report 6506618-4 (Version None)
Quarter: 2009Q4

REPORT INFORMATION
  Report Type: 
  Country: None (occurrence: None)
  Receive Date: 20091216
  Receipt Date: 20091207
  Transmission Date: 20100525
  Serious: Yes (Other)
  Sender: FDA-Public Use
  Company Number: 002788

PATIENT
  Age: 78 Year
  Sex: Male

DRUGS (1)
  1. ISOSORBIDE MONONITRATE [Suspect]
     Dosage: (30 MG QD)
     Dates: start: 19980101

REACTIONS (1)
  - PERNICIOUS ANAEMIA [None]
